FAERS Safety Report 10057450 (Version 2)
Quarter: 2014Q2

REPORT INFORMATION
  Report Type: Report from Study
  Country: US (occurrence: US)
  Receive Date: 20140403
  Receipt Date: 20140410
  Transmission Date: 20141212
  Serious: Yes (Hospitalization)
  Sender: FDA-Public Use
  Company Number: PHEH2014US006518

PATIENT
  Age: 16 Year
  Sex: Male
  Weight: 57.7 kg

DRUGS (9)
  1. TOBI [Suspect]
     Indication: CYSTIC FIBROSIS
     Dosage: 300 MG (300 MG/5ML), BID
     Route: 055
     Dates: start: 20090413
  2. TOBI [Suspect]
     Indication: BRONCHITIS
     Dosage: UNK
  3. CAYSTON [Concomitant]
     Dosage: UNK UKN, UNK
  4. PULMOZYME [Concomitant]
     Indication: CYSTIC FIBROSIS
     Dosage: UNK UKN, UNK
  5. PULMOZYME [Concomitant]
     Dosage: 2.5 MG, QD
     Route: 055
     Dates: start: 20100111
  6. CIPRO//CIPROFLOXACIN [Concomitant]
     Indication: CYSTIC FIBROSIS
     Dosage: 250 MG, UNK
     Route: 048
     Dates: start: 20140310, end: 20140320
  7. CREON [Concomitant]
     Indication: CYSTIC FIBROSIS
     Dosage: 15 DF, UNK
     Route: 048
  8. SALINE [Concomitant]
     Indication: CYSTIC FIBROSIS
     Dosage: 4 ML, BID
     Dates: start: 20100111
  9. AZITHROMYCIN [Concomitant]
     Indication: CYSTIC FIBROSIS
     Dosage: 200 MG, QD
     Dates: start: 20090726

REACTIONS (2)
  - Cystic fibrosis [Recovered/Resolved]
  - Condition aggravated [Recovered/Resolved]
